FAERS Safety Report 14571304 (Version 1)
Quarter: 2018Q1

REPORT INFORMATION
  Report Type: Spontaneous
  Country: JP (occurrence: JP)
  Receive Date: 20180226
  Receipt Date: 20180226
  Transmission Date: 20180509
  Serious: Yes (Hospitalization)
  Sender: FDA-Public Use
  Company Number: JP-009507513-1802JPN002351J

PATIENT
  Sex: Male

DRUGS (1)
  1. TEMODAL [Suspect]
     Active Substance: TEMOZOLOMIDE
     Dosage: 240 MG, 240MG TAKEN FOR 5 DAYS FOLLOWED BY 23 DAYS WASHOUT
     Route: 048
     Dates: start: 201703

REACTIONS (4)
  - Skin disorder [Unknown]
  - Blister [Unknown]
  - Skin ulcer [Unknown]
  - Fracture [Unknown]

NARRATIVE: CASE EVENT DATE: 2017
